FAERS Safety Report 8741383 (Version 2)
Quarter: 2017Q3

REPORT INFORMATION
  Report Type: Spontaneous
  Country: US (occurrence: US)
  Receive Date: 20120824
  Receipt Date: 20170922
  Transmission Date: 20171128
  Serious: No
  Sender: FDA-Public Use
  Company Number: US-ASTRAZENECA-2012SE17859

PATIENT
  Age: 72 Year
  Sex: Male
  Weight: 68.5 kg

DRUGS (2)
  1. SYMBICORT [Suspect]
     Active Substance: BUDESONIDE\FORMOTEROL FUMARATE DIHYDRATE
     Indication: ASTHMA
     Dosage: ONE PUFF TWICE A DAY
     Route: 055
  2. SYMBICORT [Suspect]
     Active Substance: BUDESONIDE\FORMOTEROL FUMARATE DIHYDRATE
     Indication: ASTHMA
     Dosage: 160/4.5 MCG, ONE INHALATION ONCE DAILY IN THE MORNING
     Route: 055
     Dates: start: 2009

REACTIONS (8)
  - Drug dose omission [Unknown]
  - Candida infection [Unknown]
  - Intentional product misuse [Unknown]
  - Off label use [Unknown]
  - Bronchitis chronic [Unknown]
  - Asthma [Unknown]
  - Drug ineffective [Unknown]
  - Wrong technique in product usage process [Unknown]

NARRATIVE: CASE EVENT DATE: 2017
